FAERS Safety Report 7254575-8 (Version None)
Quarter: 2011Q1

REPORT INFORMATION
  Report Type: 
  Country: None (occurrence: None)
  Receive Date: 20110129
  Receipt Date: 20100224
  Transmission Date: 20110831
  Serious: No
  Sender: FDA-Public Use
  Company Number: US-ABBOTT-10P-163-0628460-00

PATIENT
  Sex: Male
  Weight: 103.51 kg

DRUGS (1)
  1. HUMIRA [Suspect]
     Indication: COLITIS ULCERATIVE
     Dosage: 80MG DAY 15
     Dates: start: 20100206

REACTIONS (1)
  - INJECTION SITE HAEMATOMA [None]
